FAERS Safety Report 5016595-3 (Version None)
Quarter: 2006Q2

REPORT INFORMATION
  Report Type: 
  Country: None (occurrence: None)
  Receive Date: 20060414
  Receipt Date: 20050727
  Transmission Date: 20061013
  Serious: Yes (Other)
  Sender: FDA-Public Use
  Company Number: 2005-BP-12787BP

PATIENT
  Sex: Male
  Weight: 76.8 kg

DRUGS (3)
  1. FLOMAX [Suspect]
     Indication: BENIGN PROSTATIC HYPERPLASIA
     Dosage: 0.4 MG (0.4 MG, Q PM), PO
     Route: 048
  2. LISINOPRIL [Suspect]
     Indication: HYPERTENSION
     Dosage: PO
     Route: 048
  3. LISINOPRIL (LISINOPRIL) 3D [Concomitant]

REACTIONS (1)
  - ANGIONEUROTIC OEDEMA [None]
